FAERS Safety Report 10262746 (Version 2)
Quarter: 2014Q2

REPORT INFORMATION
  Report Type: Report from Study
  Country: US (occurrence: US)
  Receive Date: 20140626
  Receipt Date: 20140626
  Transmission Date: 20141212
  Serious: Yes (Other)
  Sender: FDA-Public Use
  Company Number: US-MYLANLABS-2013S1014112

PATIENT
  Age: 15 Year
  Sex: Male
  Weight: 70.31 kg

DRUGS (5)
  1. CLOZAPINE TABLETS [Suspect]
     Indication: BIPOLAR DISORDER
     Dosage: AT NOON
     Route: 048
     Dates: start: 201208, end: 201307
  2. CLOZAPINE TABLETS [Suspect]
     Indication: BIPOLAR DISORDER
     Route: 048
     Dates: start: 201208, end: 201307
  3. THORAZINE /00011901/ [Concomitant]
     Dates: start: 20120902
  4. DEPAKOTE [Concomitant]
     Route: 048
     Dates: start: 20120308
  5. DDAVP [Concomitant]

REACTIONS (3)
  - Granulocytopenia [Not Recovered/Not Resolved]
  - White blood cell count decreased [Recovered/Resolved]
  - Leukopenia [Recovered/Resolved]
